FAERS Safety Report 6706511-8 (Version None)
Quarter: 2010Q2

REPORT INFORMATION
  Report Type: 
  Country: None (occurrence: None)
  Receive Date: 20100503
  Receipt Date: 20100426
  Transmission Date: 20101027
  Serious: Yes (Death, Other)
  Sender: FDA-Public Use
  Company Number: PHEH2010US03008

PATIENT
  Sex: Female
  Weight: 56 kg

DRUGS (16)
  1. EXJADE [Suspect]
     Dosage: 1750 MG, QD
     Route: 048
  2. EXJADE [Suspect]
     Dosage: 1000 MG, BID
     Route: 048
  3. EXJADE [Suspect]
     Dosage: 500 MG ONCE IN MORNING AND 1000 MG QHS
     Route: 048
  4. FOLIC ACID [Concomitant]
     Dosage: 1 MG, QD
     Route: 048
  5. HYDROXYUREA [Concomitant]
     Dosage: 1000 MG, BID
     Route: 048
  6. VITAMIN B COMPLEX CAP [Concomitant]
     Dosage: 1 DF, QD
  7. MOBIC [Concomitant]
     Dosage: 15 MG, QD
     Route: 048
  8. OXYCODONE [Concomitant]
     Indication: PAIN
     Dosage: 15 MG TO 45 MG ONNCE EVERY 3 HOURS AS REQUIRED
     Route: 048
  9. OXYCONTIN [Concomitant]
     Dosage: 40MG ONCE EVERY 8 HOURS AS REQIURED
     Route: 048
  10. LEXAPRO [Concomitant]
     Indication: DYSPNOEA
     Dosage: 10 MG, QD
  11. SINGULAIR [Concomitant]
     Dosage: 10 MG, QD
     Route: 048
  12. ZYRTEC [Concomitant]
     Dosage: 10 MG, QD
     Route: 048
  13. COUMADIN [Concomitant]
     Dosage: 5 MG, QD
     Route: 048
  14. XANAX [Concomitant]
     Dosage: 1 MG ONCE EVERY 6 HOURS AS REQUIRED
     Route: 048
  15. PHENOTHIAZINE [Concomitant]
  16. NASAL SPRAY [Concomitant]

REACTIONS (9)
  - CARDIAC ARREST [None]
  - CHEST PAIN [None]
  - CIRCULATORY COLLAPSE [None]
  - CYANOSIS [None]
  - DYSPNOEA [None]
  - ENDOTRACHEAL INTUBATION [None]
  - LOSS OF CONSCIOUSNESS [None]
  - MYALGIA [None]
  - PULMONARY EMBOLISM [None]
